FAERS Safety Report 6430328-5 (Version None)
Quarter: 2009Q4

REPORT INFORMATION
  Report Type: 
  Country: None (occurrence: None)
  Receive Date: 20091104
  Receipt Date: 20091029
  Transmission Date: 20100525
  Serious: Yes (Other)
  Sender: FDA-Public Use
  Company Number: 2009SP022781

PATIENT
  Age: 54 Year
  Sex: Male

DRUGS (3)
  1. PEG-INTRON [Suspect]
     Indication: HEPATITIS C
     Dosage: 150 MCG,QW; SC
     Route: 058
     Dates: start: 20090409, end: 20090827
  2. REBETOL [Suspect]
     Indication: HEPATITIS C
     Dosage: 600 MG, QAM, P0; 400 MG, QPM; PO
     Route: 048
     Dates: start: 20090409, end: 20090827
  3. REBETOL [Suspect]
     Indication: HEPATITIS C
     Dosage: 600 MG, QAM, P0; 400 MG, QPM; PO
     Route: 048
     Dates: start: 20090409, end: 20090827

REACTIONS (1)
  - RETINAL ISCHAEMIA [None]
